FAERS Safety Report 8036223-2 (Version None)
Quarter: 2012Q1

REPORT INFORMATION
  Report Type: 
  Country: None (occurrence: None)
  Receive Date: 20120111
  Receipt Date: 20120104
  Transmission Date: 20120608
  Serious: Yes (Death)
  Sender: FDA-Public Use
  Company Number: PHEH2012US000594

PATIENT
  Sex: Male

DRUGS (4)
  1. GLEEVEC [Suspect]
     Indication: MALIGNANT SOFT TISSUE NEOPLASM
     Dosage: 400 MG, DAILY
     Route: 048
     Dates: start: 20111026
  2. ZOFRAN [Concomitant]
     Indication: NAUSEA
     Dosage: 8 MG, UNK
     Route: 048
     Dates: start: 20111102
  3. LOMOTIL [Concomitant]
     Indication: DIARRHOEA
     Route: 048
     Dates: start: 20111122
  4. OXYCODONE HCL [Concomitant]
     Indication: PAIN
     Dosage: 5 MG, UNK
     Route: 048
     Dates: start: 20111018

REACTIONS (17)
  - CREATININE RENAL CLEARANCE DECREASED [None]
  - HAEMOGLOBIN DECREASED [None]
  - BLOOD PRESSURE SYSTOLIC DECREASED [None]
  - BLOOD PRESSURE DIASTOLIC DECREASED [None]
  - LYMPHOCYTE COUNT DECREASED [None]
  - BLOOD ALKALINE PHOSPHATASE INCREASED [None]
  - PROTEIN TOTAL DECREASED [None]
  - WHITE BLOOD CELL COUNT INCREASED [None]
  - ASPARTATE AMINOTRANSFERASE INCREASED [None]
  - HAEMATOCRIT DECREASED [None]
  - NEUTROPHIL COUNT INCREASED [None]
  - ALANINE AMINOTRANSFERASE INCREASED [None]
  - BLOOD LACTATE DEHYDROGENASE INCREASED [None]
  - RED BLOOD CELL COUNT DECREASED [None]
  - PLATELET COUNT INCREASED [None]
  - BLOOD ALBUMIN DECREASED [None]
  - DEATH [None]
